FAERS Safety Report 6411801-2 (Version None)
Quarter: 2009Q4

REPORT INFORMATION
  Report Type: 
  Country: None (occurrence: None)
  Receive Date: 20091020
  Receipt Date: 20091005
  Transmission Date: 20100525
  Serious: Yes (Hospitalization)
  Sender: FDA-Public Use
  Company Number: KV200900786

PATIENT
  Age: 68 Year
  Sex: Female
  Weight: 78.9 kg

DRUGS (24)
  1. MORPHINE SULFATE [Suspect]
     Indication: SPINAL COLUMN STENOSIS
     Dosage: 15 MG, BID, ORAL
     Route: 048
     Dates: start: 20080422, end: 20081217
  2. PRILOSEC /00661201/ (OMEPRAZOLE) [Concomitant]
  3. PREDNISONE TAB [Concomitant]
  4. SYNTHROID [Concomitant]
  5. ATENOLOL [Concomitant]
  6. ALLOPURINOL [Concomitant]
  7. LEXAPRO [Concomitant]
  8. CALCITRIOL [Concomitant]
  9. KLOR-CON [Concomitant]
  10. FUROSEMIDE [Concomitant]
  11. LANTUS [Concomitant]
  12. PRAVASTATIN [Concomitant]
  13. AMITRIPTYLINE HYDROCHLORIDE [Concomitant]
  14. LUNESTA [Concomitant]
  15. HUMALOG /00030501/ (INSULIN) [Concomitant]
  16. EXELON /01383201/ (RIVASTIGMINE) [Concomitant]
  17. AVELOX /01453201/ (MOXIFLOXACIN) [Concomitant]
  18. HYDROCODONE BITARTRATE AND ACETAMINOPHEN (HYDROCODONE BITARTRATE, PARA [Concomitant]
  19. COLCHICINE (COLCHICINE) [Concomitant]
  20. COUMADIN [Concomitant]
  21. LASIX [Concomitant]
  22. NOVOLIN R [Concomitant]
  23. PHENERGAN /00033001/ (PROMETHAZINE) [Concomitant]
  24. ZYRTEC [Concomitant]

REACTIONS (21)
  - ALTERED STATE OF CONSCIOUSNESS [None]
  - ARTHRALGIA [None]
  - ASTHENIA [None]
  - BACK PAIN [None]
  - BLOOD GLUCOSE INCREASED [None]
  - BURNING SENSATION [None]
  - CONDITION AGGRAVATED [None]
  - CONFUSIONAL STATE [None]
  - DEMENTIA ALZHEIMER'S TYPE [None]
  - DIABETES MELLITUS [None]
  - ENCEPHALOPATHY [None]
  - FALL [None]
  - GAIT DISTURBANCE [None]
  - GOUT [None]
  - HEADACHE [None]
  - PAIN IN EXTREMITY [None]
  - POLYMYALGIA RHEUMATICA [None]
  - PYREXIA [None]
  - RESPIRATORY DISORDER [None]
  - TEMPORAL ARTERITIS [None]
  - WALKING AID USER [None]
